FAERS Safety Report 7897813-0 (Version None)
Quarter: 2011Q4

REPORT INFORMATION
  Report Type: 
  Country: None (occurrence: None)
  Receive Date: 20111103
  Receipt Date: 20111018
  Transmission Date: 20120403
  Serious: Yes (Hospitalization)
  Sender: FDA-Public Use
  Company Number: 2011SH00129

PATIENT
  Age: 29 Year
  Sex: Female
  Weight: 62.9139 kg

DRUGS (9)
  1. TYLENOL (PARACETAMOL0 [Concomitant]
  2. ZOFRAN [Concomitant]
  3. COLACE (DOCUSATE SODIUM) [Concomitant]
  4. HEPARIN [Concomitant]
  5. SGN-35 (CAC-10VCMMAE) INJECTION [Suspect]
     Indication: HODGKIN'S DISEASE
     Dosage: 1.2 MG/KG, Q21D,INTRAVENOUS
     Route: 042
     Dates: start: 20110623, end: 20110623
  6. ZYLOPRIM [Concomitant]
  7. DILAUDID [Concomitant]
  8. RESTORIL [Concomitant]
  9. SODIUM CHLORIDE 0.9% [Concomitant]

REACTIONS (3)
  - WHITE BLOOD CELL COUNT INCREASED [None]
  - HERPES ZOSTER [None]
  - BLOOD URIC ACID INCREASED [None]
